FAERS Safety Report 9767004 (Version 1)
Quarter: 2013Q4

REPORT INFORMATION
  Report Type: Spontaneous
  Country: US (occurrence: US)
  Receive Date: 20131217
  Receipt Date: 20131217
  Transmission Date: 20140711
  Serious: No
  Sender: FDA-Public Use
  Company Number: US-GLAXOSMITHKLINE-A1036648A

PATIENT
  Age: 57 Year
  Sex: Male

DRUGS (7)
  1. VOTRIENT [Suspect]
     Indication: SOFT TISSUE CANCER
     Dosage: 800MG PER DAY
     Route: 048
     Dates: start: 20130626
  2. DILAUDID [Concomitant]
  3. NEURONTIN [Concomitant]
  4. CELEXA [Concomitant]
  5. XANAX [Concomitant]
  6. OXYCODONE [Concomitant]
  7. OXYCONTIN [Concomitant]

REACTIONS (1)
  - Haemoptysis [Recovered/Resolved]
